FAERS Safety Report 9680526 (Version 1)
Quarter: 2013Q4

REPORT INFORMATION
  Report Type: Spontaneous
  Country: US (occurrence: US)
  Receive Date: 20131111
  Receipt Date: 20131111
  Transmission Date: 20140711
  Serious: No
  Sender: FDA-Public Use
  Company Number: US-PFIZER INC-2013317122

PATIENT
  Age: 67 Year
  Sex: Female
  Weight: 68.03 kg

DRUGS (3)
  1. FAMOTIDINE [Suspect]
     Indication: URTICARIA
     Dosage: UNK
     Dates: start: 2013
  2. VFEND [Suspect]
     Indication: ASPERGILLUS INFECTION
     Dosage: 200 MG, 2X/DAY
     Dates: start: 20131012, end: 20131031
  3. BENADRYL [Suspect]
     Indication: URTICARIA
     Dosage: UNK
     Route: 042
     Dates: start: 2013

REACTIONS (5)
  - Swelling face [Not Recovered/Not Resolved]
  - Lip swelling [Not Recovered/Not Resolved]
  - Urticaria [Not Recovered/Not Resolved]
  - Chest pain [Not Recovered/Not Resolved]
  - Drug ineffective [Unknown]
